FAERS Safety Report 6932181-X (Version None)
Quarter: 2010Q3

REPORT INFORMATION
  Report Type: 
  Country: None (occurrence: None)
  Receive Date: 20100819
  Receipt Date: 20100811
  Transmission Date: 20110219
  Serious: Yes (Other)
  Sender: FDA-Public Use
  Company Number: B0670481A

PATIENT

DRUGS (1)
  1. LAMOTRIGINE [Suspect]
     Indication: BIPOLAR DISORDER
     Route: 065

REACTIONS (8)
  - CHILLS [None]
  - FLUSHING [None]
  - HEADACHE [None]
  - INFLUENZA LIKE ILLNESS [None]
  - MENINGITIS [None]
  - PERIORBITAL OEDEMA [None]
  - PYREXIA [None]
  - WHITE BLOOD CELL COUNT DECREASED [None]
